FAERS Safety Report 5278065-7 (Version None)
Quarter: 2007Q1

REPORT INFORMATION
  Report Type: 
  Country: None (occurrence: None)
  Receive Date: 20070321
  Receipt Date: 20070309
  Transmission Date: 20070707
  Serious: Yes (Death, Hospitalization)
  Sender: FDA-Public Use
  Company Number: 2007RR-06330

PATIENT
  Age: 73 Year
  Sex: Female

DRUGS (11)
  1. DILTIAZEM [Suspect]
     Dosage: 120 MG, BID
  2. SIMVASTATIN [Suspect]
     Dosage: SEE IMAGE
  3. ASPIRIN [Concomitant]
  4. ISOSORBIDE MONONITRATE (ISOSORBIDE) [Concomitant]
  5. CILAZAPRIL [Concomitant]
  6. METOPROLOL TARTRATE [Concomitant]
  7. FUROSEMIDE [Concomitant]
  8. METFORMIN HYDROCHLORIDE (METFORMIN) [Concomitant]
  9. OMEPRAZOLE [Concomitant]
  10. INSULIN [Concomitant]
  11. AMITRIPTYLINE HCL [Concomitant]

REACTIONS (3)
  - DRUG INTERACTION [None]
  - RENAL IMPAIRMENT [None]
  - RHABDOMYOLYSIS [None]
